FAERS Safety Report 11646083 (Version 1)
Quarter: 2015Q4

REPORT INFORMATION
  Report Type: Spontaneous
  Country: US (occurrence: US)
  Receive Date: 20151020
  Receipt Date: 20151020
  Transmission Date: 20160304
  Serious: No
  Sender: FDA-Public Use
  Company Number: US-ROCHE-1620100

PATIENT
  Sex: Female
  Weight: 91.71 kg

DRUGS (2)
  1. CIPRO [Concomitant]
     Active Substance: CIPROFLOXACIN HYDROCHLORIDE
  2. ESBRIET [Suspect]
     Active Substance: PIRFENIDONE
     Indication: IDIOPATHIC PULMONARY FIBROSIS
     Route: 048
     Dates: start: 20150702

REACTIONS (3)
  - Cough [Not Recovered/Not Resolved]
  - Urinary tract infection [Unknown]
  - Dyspepsia [Unknown]
